FAERS Safety Report 9712699 (Version 1)
Quarter: 2013Q4

REPORT INFORMATION
  Report Type: Spontaneous
  Country: US (occurrence: US)
  Receive Date: 20131126
  Receipt Date: 20131126
  Transmission Date: 20140711
  Serious: No
  Sender: FDA-Public Use
  Company Number: US-BRISTOL-MYERS SQUIBB COMPANY-18902544

PATIENT
  Age: 57 Year
  Sex: Female
  Weight: 105.67 kg

DRUGS (12)
  1. BYDUREON [Suspect]
     Indication: TYPE 2 DIABETES MELLITUS
     Dosage: NO OF INJ:3?30AP13,7MAY13
     Route: 058
     Dates: start: 20130423
  2. LOSARTAN [Concomitant]
  3. CRESTOR [Concomitant]
  4. LORATADINE [Concomitant]
  5. PROTONIX [Concomitant]
  6. CALCIUM [Concomitant]
  7. LEVOTHYROXINE [Concomitant]
  8. ALBUTEROL [Concomitant]
     Route: 055
  9. XANAX [Concomitant]
  10. ASPIRIN [Concomitant]
  11. ONGLYZA TABS [Concomitant]
  12. METFORMIN [Concomitant]

REACTIONS (5)
  - Injection site erythema [Unknown]
  - Injection site pruritus [Unknown]
  - Injection site nodule [Unknown]
  - Urticaria [Not Recovered/Not Resolved]
  - Weight decreased [Unknown]
